FAERS Safety Report 10269072 (Version 2)
Quarter: 2014Q2

REPORT INFORMATION
  Report Type: Report from Study
  Country: DE (occurrence: DE)
  Receive Date: 20140630
  Receipt Date: 20140630
  Transmission Date: 20141212
  Serious: Yes (Hospitalization)
  Sender: FDA-Public Use
  Company Number: DE-ROCHE-1425209

PATIENT
  Age: 52 Year
  Sex: Female
  Weight: 82 kg

DRUGS (5)
  1. TOCILIZUMAB [Suspect]
     Indication: RHEUMATOID ARTHRITIS
     Route: 042
     Dates: start: 20130728, end: 20131217
  2. PREDNISOLON [Concomitant]
     Indication: RHEUMATOID ARTHRITIS
     Route: 048
     Dates: start: 20080814
  3. DICLAC [Concomitant]
     Indication: PAIN
     Dosage: AS REQUIRED.
     Route: 048
     Dates: start: 20121127
  4. HYDROXYCHLOROQUINE [Concomitant]
     Indication: RHEUMATOID ARTHRITIS
     Route: 048
     Dates: start: 20140409
  5. SULFASALAZIN [Concomitant]
     Indication: POLYARTHRITIS
     Route: 048
     Dates: start: 20140409

REACTIONS (1)
  - Rheumatoid arthritis [Recovered/Resolved]
